FAERS Safety Report 18654842 (Version 1)
Quarter: 2020Q4

REPORT INFORMATION
  Report Type: Spontaneous
  Country: ES (occurrence: ES)
  Receive Date: 20201223
  Receipt Date: 20201223
  Transmission Date: 20210114
  Serious: Yes (Hospitalization)
  Sender: FDA-Public Use
  Company Number: ES-JNJFOC-20200746067

PATIENT
  Age: 38 Year
  Sex: Male

DRUGS (4)
  1. XEPLION [Suspect]
     Active Substance: PALIPERIDONE PALMITATE
     Route: 030
  2. XEPLION [Suspect]
     Active Substance: PALIPERIDONE PALMITATE
     Indication: SCHIZOPHRENIA
     Route: 030
     Dates: start: 2019
  3. XEPLION [Suspect]
     Active Substance: PALIPERIDONE PALMITATE
     Route: 030
  4. XEPLION [Suspect]
     Active Substance: PALIPERIDONE PALMITATE
     Route: 030

REACTIONS (14)
  - Malaise [Recovered/Resolved]
  - Off label use [Unknown]
  - Back pain [Unknown]
  - Hospitalisation [Unknown]
  - Personality change [Unknown]
  - Illusion [Recovered/Resolved]
  - Thinking abnormal [Unknown]
  - Incorrect dose administered [Unknown]
  - Disturbance in attention [Unknown]
  - Hypersomnia [Unknown]
  - Fall [Unknown]
  - Feeling abnormal [Unknown]
  - Thinking abnormal [Recovered/Resolved]
  - Sedation [Unknown]
